FAERS Safety Report 23649503 (Version 3)
Quarter: 2024Q2

REPORT INFORMATION
  Report Type: Report from Study
  Country: OM (occurrence: OM)
  Receive Date: 20240319
  Receipt Date: 20240619
  Transmission Date: 20240715
  Serious: Yes (Other)
  Sender: FDA-Public Use
  Company Number: OM-BAYER-2024A038602

PATIENT
  Age: 4 Year
  Sex: Male

DRUGS (1)
  1. LAROTRECTINIB [Suspect]
     Active Substance: LAROTRECTINIB
     Indication: Congenital fibrosarcoma
     Dosage: UNK
     Dates: start: 20220606, end: 20240226

REACTIONS (1)
  - Metastases to lung [Not Recovered/Not Resolved]
